FAERS Safety Report 7034435-8 (Version None)
Quarter: 2010Q4

REPORT INFORMATION
  Report Type: 
  Country: None (occurrence: None)
  Receive Date: 20101008
  Receipt Date: 20100928
  Transmission Date: 20110411
  Serious: Yes (Other)
  Sender: FDA-Public Use
  Company Number: PHEH2009US16763

PATIENT
  Sex: Female

DRUGS (10)
  1. RECLAST [Suspect]
     Indication: OSTEOPOROSIS POSTMENOPAUSAL
     Dosage: 5 MG ONCE A YEAR
     Dates: start: 20091117, end: 20091117
  2. CYMBALTA [Concomitant]
  3. XANAX [Concomitant]
  4. NUTRITION SUPPLEMENTS (ORGANIC) [Concomitant]
  5. TRAZODONE HCL [Concomitant]
  6. NUVIGIL [Concomitant]
  7. PROTONIX [Concomitant]
  8. SYNTHROID [Concomitant]
  9. COQ10 [Concomitant]
  10. VITAMIN D3 [Concomitant]

REACTIONS (4)
  - CATARACT [None]
  - CATARACT OPERATION [None]
  - METAMORPHOPSIA [None]
  - VISION BLURRED [None]
